FAERS Safety Report 11379755 (Version 2)
Quarter: 2015Q3

REPORT INFORMATION
  Report Type: Spontaneous
  Country: None (occurrence: None)
  Receive Date: 20150813
  Receipt Date: 20150813
  Transmission Date: 20151125
  Serious: Yes (Other)
  Sender: FDA-Public Use
  Company Number: None

PATIENT
  Age: 27 Year
  Sex: Female
  Weight: 90.72 kg

DRUGS (1)
  1. FETZIMA [Suspect]
     Active Substance: LEVOMILNACIPRAN HYDROCHLORIDE
     Indication: DEPRESSION
     Dosage: 1X
     Route: 048
     Dates: start: 20140701

REACTIONS (5)
  - Nausea [None]
  - Palpitations [None]
  - Dizziness [None]
  - Heart rate increased [None]
  - Visual impairment [None]

NARRATIVE: CASE EVENT DATE: 20150720
